FAERS Safety Report 17040471 (Version 1)
Quarter: 2019Q4

REPORT INFORMATION
  Report Type: Spontaneous
  Country: GB (occurrence: GB)
  Receive Date: 20191117
  Receipt Date: 20191117
  Transmission Date: 20200122
  Serious: Yes (Other)
  Sender: FDA-Public Use
  Company Number: GB-DEXPHARM-20190984

PATIENT
  Age: 54 Year
  Sex: Female
  Weight: 145 kg

DRUGS (14)
  1. HIBISCRUB [Concomitant]
     Active Substance: CHLORHEXIDINE GLUCONATE
  2. SOY ISOFLAVONES [Concomitant]
     Active Substance: SOY ISOFLAVONES
     Indication: MENOPAUSE
  3. ATENOLOL. [Concomitant]
     Active Substance: ATENOLOL
  4. VOLTAROL EMULGEL P (DICLOFENAC DIETHYLAMMONIUM SALT) [Suspect]
     Active Substance: DICLOFENAC DIETHYLAMINE
     Indication: ARTHRALGIA
     Dosage: 2MG + 4MG
     Route: 061
     Dates: start: 20151010, end: 20180115
  5. LACIDIPINE [Concomitant]
     Active Substance: LACIDIPINE
     Dosage: 2MG + 4MG
  6. DERMOL [Concomitant]
     Active Substance: BENZALKONIUM CHLORIDE\CHLORHEXIDINE HYDROCHLORIDE\ISOPROPYL MYRISTATE\PARAFFIN
  7. DOVONEX [Concomitant]
     Active Substance: CALCIPOTRIENE
  8. DOVOBET [Concomitant]
     Active Substance: BETAMETHASONE\CALCIPOTRIENE
  9. SOLIFENACIN [Concomitant]
     Active Substance: SOLIFENACIN
  10. VITAMIN AND MINERAL SUPPLEMENT [Concomitant]
     Indication: MENOPAUSE
  11. BRISTOL LABS LANSOPRAZOLE GASTRO-RESISTANT [Concomitant]
  12. BRISTOL LABS RAMIPRIL [Concomitant]
     Active Substance: RAMIPRIL
     Dosage: 2MG + 4MG
  13. BETAMETHASONE AND CALCIPOTRIOL [Concomitant]
     Dosage: 2MG + 4MG
  14. DOUBLEBASE [Concomitant]
     Active Substance: ISOPROPYL MYRISTATE\PARAFFIN

REACTIONS (1)
  - Lip swelling [Recovered/Resolved with Sequelae]

NARRATIVE: CASE EVENT DATE: 20171220
